FAERS Safety Report 5253968-8 (Version None)
Quarter: 2007Q1

REPORT INFORMATION
  Report Type: 
  Country: None (occurrence: None)
  Receive Date: 20070228
  Receipt Date: 20070228
  Transmission Date: 20070707
  Serious: No
  Sender: FDA-Public Use
  Company Number: None

PATIENT
  Sex: Female
  Weight: 56.6996 kg

DRUGS (1)
  1. GENERIC PLEXION NA SULFACETAMIDE (GLADES) [Suspect]
     Indication: ACNE
     Dosage: 1 APPLICATION QHS TOPICAL
     Route: 061
     Dates: start: 20061207, end: 20061222

REACTIONS (4)
  - PHARMACEUTICAL PRODUCT COMPLAINT [None]
  - SKIN EXFOLIATION [None]
  - SKIN IRRITATION [None]
  - THERAPEUTIC RESPONSE UNEXPECTED WITH DRUG SUBSTITUTION [None]
